FAERS Safety Report 12055704 (Version 2)
Quarter: 2016Q1

REPORT INFORMATION
  Report Type: Report from Study
  Country: CO (occurrence: CO)
  Receive Date: 20160209
  Receipt Date: 20160229
  Transmission Date: 20160526
  Serious: Yes (Other)
  Sender: FDA-Public Use
  Company Number: CO-ABBVIE-16K-036-1555276-00

PATIENT
  Age: 64 Year
  Sex: Female
  Weight: 64 kg

DRUGS (1)
  1. HUMIRA [Suspect]
     Active Substance: ADALIMUMAB
     Indication: PSORIASIS
     Route: 058
     Dates: start: 20130905, end: 20151001

REACTIONS (18)
  - Meniscus injury [Unknown]
  - Arthralgia [Not Recovered/Not Resolved]
  - Cervicitis [Unknown]
  - Joint stiffness [Unknown]
  - Arthritis [Unknown]
  - Uterine cervix ulcer [Unknown]
  - Gait disturbance [Not Recovered/Not Resolved]
  - Musculoskeletal pain [Not Recovered/Not Resolved]
  - Oedema peripheral [Not Recovered/Not Resolved]
  - Uterine cervical squamous metaplasia [Unknown]
  - Compartment syndrome [Unknown]
  - Papilloma viral infection [Unknown]
  - Bacterial infection [Unknown]
  - Cervical dysplasia [Unknown]
  - Exostosis [Unknown]
  - Bursal fluid accumulation [Unknown]
  - Cervix oedema [Unknown]
  - Uterine cervix atrophy [Unknown]

NARRATIVE: CASE EVENT DATE: 20151102
